FAERS Safety Report 12398176 (Version 1)
Quarter: 2016Q2

REPORT INFORMATION
  Report Type: Spontaneous
  Country: US (occurrence: US)
  Receive Date: 20160524
  Receipt Date: 20160524
  Transmission Date: 20160815
  Serious: No
  Sender: FDA-Public Use
  Company Number: US-PFIZER INC-2016241948

PATIENT
  Age: 58 Year
  Sex: Female
  Weight: 63.5 kg

DRUGS (5)
  1. LYRICA [Suspect]
     Active Substance: PREGABALIN
     Indication: FIBROMYALGIA
     Dosage: 50MG CAPSULES, ONE CAPSULE BY MOUTH THREE TIMES A DAY
     Route: 048
  2. LYRICA [Suspect]
     Active Substance: PREGABALIN
     Indication: PAIN
  3. NEURONTIN [Concomitant]
     Active Substance: GABAPENTIN
     Dosage: 600MG CAPSULES, ONE CAPSULE BY MOUTH THREE TIMES A DAY
     Route: 048
  4. TRAMADOL. [Concomitant]
     Active Substance: TRAMADOL
     Indication: PAIN
     Dosage: 50MG TABLETS, ONE TABLET BY MOUTH THREE TIMES A DAY AS NEEDED
     Route: 048
  5. LEXAPRO [Concomitant]
     Active Substance: ESCITALOPRAM OXALATE
     Indication: ANXIETY
     Dosage: 20MG TABLET, ONE TABLET BY MOUTH DAILY
     Route: 048

REACTIONS (3)
  - Drug ineffective [Recovered/Resolved]
  - Emotional disorder [Recovered/Resolved]
  - Paraesthesia [Recovered/Resolved]
